FAERS Safety Report 10541639 (Version 1)
Quarter: 2014Q4

REPORT INFORMATION
  Report Type: Spontaneous
  Country: US (occurrence: None)
  Receive Date: 20141010
  Receipt Date: 20141010
  Transmission Date: 20150529
  Serious: Yes (Hospitalization)
  Sender: FDA-Public Use
  Company Number: 163-POMAL-14081305

PATIENT
  Age: 69 Year
  Sex: Male
  Weight: 113.4 kg

DRUGS (9)
  1. JANUMET (JANUMET) (UNKNOWN) [Concomitant]
  2. LISINOPRIL (LISINOPRIL) (UNKNOWN) (LISINOPRIL) [Concomitant]
     Active Substance: LISINOPRIL
  3. HYDROCHLOROTHIAZIDE (HYDROCHLOROTHIAZIDE) (UNKNOWN) [Concomitant]
  4. BUFFERED ASPIRIN (ACETYLSALICYLIC ACID) (UNKNOWN) [Concomitant]
  5. PLAVIX (CLOPIDOGREL SULFATE) (UNKNOWN) [Concomitant]
  6. POMALYST [Suspect]
     Active Substance: POMALIDOMIDE
     Indication: PLASMA CELL MYELOMA
     Dosage: 4 MG, 21 IN 28 D, PO
     Route: 048
     Dates: start: 20140411
  7. MULTIVITAMINS (MULTIVITAMINS) (UNKNOWN) [Concomitant]
  8. LANTUS (INSULIN GLARGINE) (UNKNOWN) [Concomitant]
  9. LIPITOR [Concomitant]
     Active Substance: ATORVASTATIN CALCIUM

REACTIONS (1)
  - Localised infection [None]

NARRATIVE: CASE EVENT DATE: 2014
